FAERS Safety Report 13371838 (Version 1)
Quarter: 2017Q1

REPORT INFORMATION
  Report Type: Report from Study
  Country: KR (occurrence: KR)
  Receive Date: 20170325
  Receipt Date: 20170325
  Transmission Date: 20170429
  Serious: Yes (Death, Other)
  Sender: FDA-Public Use
  Company Number: KR-MEDA-2017030070

PATIENT
  Age: 35 Year
  Sex: Male

DRUGS (5)
  1. NORDAZEPAM [Suspect]
     Active Substance: NORDAZEPAM
  2. ZOLPIDEM [Suspect]
     Active Substance: ZOLPIDEM\ZOLPIDEM TARTRATE
  3. CLOMIPRAMINE [Suspect]
     Active Substance: CLOMIPRAMINE
  4. MIRTAZAPINE. [Suspect]
     Active Substance: MIRTAZAPINE
  5. DIAZEPAM. [Suspect]
     Active Substance: DIAZEPAM

REACTIONS (1)
  - Toxicity to various agents [Fatal]

NARRATIVE: CASE EVENT DATE: 2014
